FAERS Safety Report 17997828 (Version 2)
Quarter: 2020Q3

REPORT INFORMATION
  Report Type: Spontaneous
  Country: US (occurrence: US)
  Receive Date: 20200709
  Receipt Date: 20200818
  Transmission Date: 20201103
  Serious: No
  Sender: FDA-Public Use
  Company Number: US-BEH-2020119820

PATIENT
  Sex: Female

DRUGS (43)
  1. HIZENTRA [Suspect]
     Active Substance: HUMAN IMMUNOGLOBULIN G
     Dosage: UNK
     Route: 058
  2. CIPROFLOXACIN. [Concomitant]
     Active Substance: CIPROFLOXACIN
  3. LEVOTHYROXIN [Concomitant]
     Active Substance: LEVOTHYROXINE
  4. ORENCIA [Concomitant]
     Active Substance: ABATACEPT
  5. PANTOPRAZOLE [Concomitant]
     Active Substance: PANTOPRAZOLE
  6. BENADRYL [Concomitant]
     Active Substance: DIPHENHYDRAMINE HYDROCHLORIDE
     Indication: PREMEDICATION
  7. BENADRYL [Concomitant]
     Active Substance: DIPHENHYDRAMINE HYDROCHLORIDE
     Indication: PREMEDICATION
  8. HIZENTRA [Suspect]
     Active Substance: HUMAN IMMUNOGLOBULIN G
     Indication: IMMUNODEFICIENCY COMMON VARIABLE
     Dosage: 10 GRAM (50 ML, 2 VIALS 4 GM AND 1 VIAL 2 GM), QW
     Route: 058
     Dates: start: 20181106
  9. HIZENTRA [Suspect]
     Active Substance: HUMAN IMMUNOGLOBULIN G
     Dosage: UNK
     Route: 058
  10. DILTIAZEM. [Concomitant]
     Active Substance: DILTIAZEM
  11. DOXYCYCLINE MONOHYDRATE [Concomitant]
     Active Substance: DOXYCYCLINE
  12. LEVOCETIRIZIN [Concomitant]
     Active Substance: LEVOCETIRIZINE DIHYDROCHLORIDE
  13. MONTELUKAST [Concomitant]
     Active Substance: MONTELUKAST SODIUM
  14. PREGABALIN. [Concomitant]
     Active Substance: PREGABALIN
  15. SUMATRIPTAN. [Concomitant]
     Active Substance: SUMATRIPTAN
  16. ACETAZOLAMID [Concomitant]
     Active Substance: ACETAZOLAMIDE
  17. CALCITRIOL. [Concomitant]
     Active Substance: CALCITRIOL
  18. COMBIVENT [Concomitant]
     Active Substance: ALBUTEROL SULFATE\IPRATROPIUM BROMIDE
  19. EZETIMIBE. [Concomitant]
     Active Substance: EZETIMIBE
  20. IMITREX [Concomitant]
     Active Substance: SUMATRIPTAN SUCCINATE
     Indication: PREMEDICATION
  21. PROMETHAZINE [Concomitant]
     Active Substance: PROMETHAZINE HYDROCHLORIDE
  22. HIZENTRA [Suspect]
     Active Substance: HUMAN IMMUNOGLOBULIN G
     Dosage: UNK
     Route: 058
  23. ALBUTEROL [SALBUTAMOL] [Concomitant]
     Active Substance: ALBUTEROL
  24. EPINEPHRINE. [Concomitant]
     Active Substance: EPINEPHRINE
  25. ESTRADIOL. [Concomitant]
     Active Substance: ESTRADIOL
  26. FUROSEMIDE. [Concomitant]
     Active Substance: FUROSEMIDE
  27. GLIMEPIRIDE. [Concomitant]
     Active Substance: GLIMEPIRIDE
  28. LEFLUNOMIDE. [Concomitant]
     Active Substance: LEFLUNOMIDE
  29. METOPROLOL TARTRATE. [Concomitant]
     Active Substance: METOPROLOL TARTRATE
  30. NITROGLYCERIN. [Concomitant]
     Active Substance: NITROGLYCERIN
  31. OLOPATADINE. [Concomitant]
     Active Substance: OLOPATADINE
  32. TRAMADOL HCL [Concomitant]
     Active Substance: TRAMADOL HYDROCHLORIDE
  33. HIZENTRA [Suspect]
     Active Substance: HUMAN IMMUNOGLOBULIN G
     Dosage: UNK
     Route: 058
  34. CYCLOBENZAPRIN [Concomitant]
     Active Substance: CYCLOBENZAPRINE
  35. MOXIFLOXACIN. [Concomitant]
     Active Substance: MOXIFLOXACIN
  36. POTASSIUM CHLORIDE. [Concomitant]
     Active Substance: POTASSIUM CHLORIDE
  37. PREDNISOLONE. [Concomitant]
     Active Substance: PREDNISOLONE
  38. PREDNISONE. [Concomitant]
     Active Substance: PREDNISONE
  39. FLUTICASONE PROPIONATE;SALMETEROL [Concomitant]
     Active Substance: FLUTICASONE PROPIONATE\SALMETEROL XINAFOATE
  40. AZITHROMYCIN ANHYDROUS. [Concomitant]
     Active Substance: AZITHROMYCIN ANHYDROUS
  41. FOLIC ACID. [Concomitant]
     Active Substance: FOLIC ACID
  42. ISOSORB MONO [Concomitant]
     Active Substance: ISOSORBIDE MONONITRATE
  43. PROLENSA [Concomitant]
     Active Substance: BROMFENAC SODIUM

REACTIONS (7)
  - Pruritus [Not Recovered/Not Resolved]
  - Arthritis [Not Recovered/Not Resolved]
  - Arthralgia [Not Recovered/Not Resolved]
  - Swelling [Not Recovered/Not Resolved]
  - Nausea [Not Recovered/Not Resolved]
  - Pain in extremity [Not Recovered/Not Resolved]
  - Inflammation [Not Recovered/Not Resolved]
